FAERS Safety Report 6304131-0 (Version None)
Quarter: 2009Q3

REPORT INFORMATION
  Report Type: 
  Country: None (occurrence: None)
  Receive Date: 20090806
  Receipt Date: 20090731
  Transmission Date: 20100115
  Serious: No
  Sender: FDA-Public Use
  Company Number: 20097091

PATIENT
  Sex: Male

DRUGS (1)
  1. LIORESAL [Suspect]
     Indication: MUSCLE SPASTICITY
     Dosage: MCG, DAILY, INTRATHECAL
     Route: 037

REACTIONS (5)
  - DRUG WITHDRAWAL SYNDROME [None]
  - HYPERTONIA [None]
  - IMPLANT SITE INFECTION [None]
  - TACHYCARDIA [None]
  - WOUND DEHISCENCE [None]
